FAERS Safety Report 7633297-5 (Version None)
Quarter: 2011Q3

REPORT INFORMATION
  Report Type: 
  Country: None (occurrence: None)
  Receive Date: 20110725
  Receipt Date: 20110718
  Transmission Date: 20111222
  Serious: Yes (Other)
  Sender: FDA-Public Use
  Company Number: DE-GLAXOSMITHKLINE-B0733077A

PATIENT
  Age: 51 Year
  Sex: Female
  Weight: 69 kg

DRUGS (7)
  1. SIMVASTATIN [Concomitant]
  2. ENALAPRIL MALEATE [Concomitant]
  3. CRATAEGUTT [Concomitant]
  4. EUTHYROX [Concomitant]
  5. METOPROLOL TARTRATE [Concomitant]
  6. ALLI [Suspect]
     Indication: WEIGHT DECREASED
     Dosage: 2CAP PER DAY
     Route: 065
  7. ASPIRIN [Concomitant]

REACTIONS (1)
  - RECTAL HAEMORRHAGE [None]
